FAERS Safety Report 6522457-2 (Version None)
Quarter: 2009Q4

REPORT INFORMATION
  Report Type: 
  Country: None (occurrence: None)
  Receive Date: 20091230
  Receipt Date: 20091228
  Transmission Date: 20100525
  Serious: Yes (Hospitalization, Other)
  Sender: FDA-Public Use
  Company Number: US-ELI_LILLY_AND_COMPANY-US200910007281

PATIENT
  Sex: Male

DRUGS (6)
  1. ALIMTA [Suspect]
     Indication: NON-SMALL CELL LUNG CANCER
  2. FOLIC ACID [Concomitant]
  3. VITAMIN B-12 [Concomitant]
  4. DEXAMETHASONE [Concomitant]
     Dosage: 4 MG, 2/D, DAY OF AND DAY AFTER PEMETREXED
     Dates: start: 20080514, end: 20080917
  5. DEXAMETHASONE [Concomitant]
     Dosage: 4 MG, WITH EACH DOSE OF PEMETREXED
     Route: 042
  6. COUMADIN [Concomitant]

REACTIONS (2)
  - ENCEPHALOPATHY [None]
  - PLEURAL EFFUSION [None]
